FAERS Safety Report 23168120 (Version 2)
Quarter: 2024Q2

REPORT INFORMATION
  Report Type: Spontaneous
  Country: JP (occurrence: JP)
  Receive Date: 20231109
  Receipt Date: 20240404
  Transmission Date: 20240716
  Serious: Yes (Other)
  Sender: FDA-Public Use
  Company Number: JP-ELI_LILLY_AND_COMPANY-JP202311001095

PATIENT
  Age: 58 Year
  Sex: Female

DRUGS (2)
  1. VERZENIO [Suspect]
     Active Substance: ABEMACICLIB
     Indication: Breast cancer
     Dosage: 200 MG, UNKNOWN
     Route: 048
     Dates: start: 20221101, end: 20221129
  2. ANASTROZOLE [Suspect]
     Active Substance: ANASTROZOLE
     Indication: Breast cancer
     Dosage: UNK
     Route: 048
     Dates: start: 20221101, end: 20221129

REACTIONS (2)
  - Hepatic function abnormal [Recovered/Resolved]
  - Malaise [Recovered/Resolved]

NARRATIVE: CASE EVENT DATE: 20221129
